FAERS Safety Report 10919559 (Version 2)
Quarter: 2015Q1

REPORT INFORMATION
  Report Type: Spontaneous
  Country: JP (occurrence: JP)
  Receive Date: 20150317
  Receipt Date: 20150325
  Transmission Date: 20150721
  Serious: Yes (Death, Hospitalization, Other)
  Sender: FDA-Public Use
  Company Number: JP-ROCHE-1552136

PATIENT
  Age: 62 Year
  Sex: Male

DRUGS (4)
  1. VALIXA [Suspect]
     Active Substance: VALGANCICLOVIR
     Indication: CYTOMEGALOVIRUS ENTEROCOLITIS
     Route: 048
  2. DENOSINE [Suspect]
     Active Substance: GANCICLOVIR
     Indication: ENCEPHALITIS CYTOMEGALOVIRUS
     Route: 042
  3. CELLCEPT [Suspect]
     Active Substance: MYCOPHENOLATE MOFETIL\MYCOPHENOLATE MOFETIL HYDROCHLORIDE
     Indication: PROPHYLAXIS
     Dosage: DOSAGE IS UNCERTAIN.
     Route: 048
  4. TACROLIMUS HYDRATE [Concomitant]
     Active Substance: TACROLIMUS
     Dosage: DOSAGE IS UNCERTAIN.
     Route: 065

REACTIONS (7)
  - Pneumonia [Fatal]
  - Seizure [Fatal]
  - Encephalitis cytomegalovirus [Unknown]
  - Off label use [Unknown]
  - Cytopenia [Unknown]
  - Fungal infection [Unknown]
  - Cytomegalovirus enterocolitis [Unknown]
